FAERS Safety Report 9391611 (Version 1)
Quarter: 2013Q3

REPORT INFORMATION
  Report Type: Spontaneous
  Country: GB (occurrence: GB)
  Receive Date: 20130709
  Receipt Date: 20130709
  Transmission Date: 20140515
  Serious: Yes (Disabling)
  Sender: FDA-Public Use
  Company Number: GB-TEVA-416537ISR

PATIENT
  Age: 55 Year
  Sex: Female
  Weight: 79.9 kg

DRUGS (1)
  1. METFORMIN [Suspect]
     Dates: start: 201203

REACTIONS (1)
  - Colitis [Recovering/Resolving]
